FAERS Safety Report 24625740 (Version 1)
Quarter: 2024Q4

REPORT INFORMATION
  Report Type: Report from Study
  Country: US (occurrence: US)
  Receive Date: 20241115
  Receipt Date: 20241115
  Transmission Date: 20250115
  Serious: Yes (Other)
  Sender: OTSUKA
  Company Number: US-OTSUKA-2024_030545

PATIENT
  Sex: Male

DRUGS (2)
  1. TOLVAPTAN [Suspect]
     Active Substance: TOLVAPTAN
     Indication: Congenital cystic kidney disease
     Dosage: 45 MG, QD (UPON WAKING)
     Route: 048
     Dates: start: 20240924
  2. TOLVAPTAN [Suspect]
     Active Substance: TOLVAPTAN
     Dosage: 15 MG, QD (8 HRS LATER)
     Route: 048
     Dates: start: 20240924

REACTIONS (6)
  - Renal impairment [Unknown]
  - Hypertension [Unknown]
  - Insomnia [Unknown]
  - Constipation [Unknown]
  - Thirst [Unknown]
  - Pollakiuria [Unknown]
